FAERS Safety Report 20051742 (Version 3)
Quarter: 2021Q4

REPORT INFORMATION
  Report Type: Report from Study
  Country: US (occurrence: US)
  Receive Date: 20211110
  Receipt Date: 20211214
  Transmission Date: 20220304
  Serious: Yes (Hospitalization)
  Sender: FDA-Public Use
  Company Number: US-ABBVIE-21K-163-4089704-00

PATIENT
  Age: 85 Year
  Sex: Male
  Weight: 69.734 kg

DRUGS (7)
  1. IMBRUVICA [Suspect]
     Active Substance: IBRUTINIB
     Indication: Chronic lymphocytic leukaemia
     Route: 048
     Dates: start: 20170822
  2. FUROSEMIDE [Concomitant]
     Active Substance: FUROSEMIDE
     Indication: Blood pressure measurement
  3. ALLOPURINOL [Concomitant]
     Active Substance: ALLOPURINOL
     Indication: Gout
  4. COLACE [Concomitant]
     Active Substance: DOCUSATE SODIUM
     Indication: Constipation
  5. FAMOTIDINE [Concomitant]
     Active Substance: FAMOTIDINE
     Indication: Gastrooesophageal reflux disease
  6. LEVOTHYROXINE [Concomitant]
     Active Substance: LEVOTHYROXINE
     Indication: Hypothyroidism
  7. TYLENOL WITH CODEINE [Concomitant]
     Active Substance: ACETAMINOPHEN\CODEINE PHOSPHATE
     Indication: Pain

REACTIONS (3)
  - Fall [Not Recovered/Not Resolved]
  - Oedema peripheral [Recovered/Resolved]
  - Urinary tract infection [Recovered/Resolved]

NARRATIVE: CASE EVENT DATE: 20180327
